FAERS Safety Report 6653512-4 (Version None)
Quarter: 2010Q1

REPORT INFORMATION
  Report Type: 
  Country: None (occurrence: None)
  Receive Date: 20100326
  Receipt Date: 20100317
  Transmission Date: 20100710
  Serious: Yes (Hospitalization)
  Sender: FDA-Public Use
  Company Number: FR-AMGEN-US391111

PATIENT
  Sex: Male
  Weight: 74 kg

DRUGS (1)
  1. ENBREL [Suspect]
     Indication: ANKYLOSING SPONDYLITIS
     Dosage: UNKNOWN
     Route: 058
     Dates: start: 20080101, end: 20080101

REACTIONS (10)
  - ANOSMIA [None]
  - BLADDER HYPERTROPHY [None]
  - GASTRIC MUCOSAL HYPERTROPHY [None]
  - GASTROINTESTINAL DISORDER [None]
  - PERICARDIAL EFFUSION [None]
  - PULMONARY ARTERIAL HYPERTENSION [None]
  - PULMONARY FIBROSIS [None]
  - SARCOIDOSIS [None]
  - SJOGREN'S SYNDROME [None]
  - TRACHEAL OBSTRUCTION EXTRINSIC [None]
